FAERS Safety Report 5471685-6 (Version None)
Quarter: 2007Q3

REPORT INFORMATION
  Report Type: 
  Country: None (occurrence: None)
  Receive Date: 20070928
  Receipt Date: 20070403
  Transmission Date: 20080115
  Serious: No
  Sender: FDA-Public Use
  Company Number: US-BRISTOL-MYERS SQUIBB COMPANY-13736954

PATIENT
  Sex: Female
  Weight: 91 kg

DRUGS (7)
  1. DEFINITY [Suspect]
     Route: 040
     Dates: start: 20070403, end: 20070403
  2. DEFINITY [Suspect]
  3. DEFINITY [Suspect]
     Route: 040
  4. DEPO-PROVERA [Concomitant]
  5. NEXIUM [Concomitant]
  6. MOTRIN [Concomitant]
  7. ANTIBIOTIC [Concomitant]

REACTIONS (4)
  - ABDOMINAL DISCOMFORT [None]
  - DIZZINESS [None]
  - FEELING HOT [None]
  - FLANK PAIN [None]
